FAERS Safety Report 4394265-2 (Version None)
Quarter: 2004Q3

REPORT INFORMATION
  Report Type: 
  Country: None (occurrence: None)
  Receive Date: 20040707
  Receipt Date: 20040625
  Transmission Date: 20050211
  Serious: Yes (Hospitalization)
  Sender: FDA-Public Use
  Company Number: HQWYE755029JUN04

PATIENT
  Age: 73 Year
  Sex: Female

DRUGS (1)
  1. METHOCARBAMOL [Suspect]
     Dosage: ORAL
     Route: 048
     Dates: end: 20040601

REACTIONS (2)
  - ASTHENIA [None]
  - FATIGUE [None]
